FAERS Safety Report 8920941 (Version 1)
Quarter: 2012Q4

REPORT INFORMATION
  Report Type: 
  Country: US (occurrence: US)
  Receive Date: 20121121
  Receipt Date: 20121121
  Transmission Date: 20130627
  Serious: Yes (Hospitalization, Other)
  Sender: FDA-Public Use
  Company Number: US-TARO-2012P1060790

PATIENT
  Age: 81 Year
  Sex: Male

DRUGS (7)
  1. UNSPECIFIED INGREDIENT [Suspect]
     Indication: TINEA PEDIS
     Route: 061
     Dates: start: 20120905, end: 20120912
  2. AMIODARONE [Concomitant]
     Route: 048
     Dates: start: 201001, end: 201209
  3. CENTRUM SILVER [Concomitant]
     Route: 048
     Dates: start: 2012
  4. ECOTRIN [Concomitant]
     Route: 048
     Dates: start: 1992
  5. HYDROCHLOROTHIAZIDE [Concomitant]
     Route: 048
     Dates: start: 1992
  6. CARDURA [Concomitant]
     Route: 048
     Dates: start: 2009
  7. KLOR-CON (POTASSIUM CHLORIDE) [Concomitant]
     Route: 048
     Dates: start: 1992

REACTIONS (1)
  - Pneumonia [Recovered/Resolved]
